FAERS Safety Report 7366522-9 (Version None)
Quarter: 2011Q1

REPORT INFORMATION
  Report Type: 
  Country: None (occurrence: None)
  Receive Date: 20110322
  Receipt Date: 20110322
  Transmission Date: 20110831
  Serious: Yes (Death)
  Sender: FDA-Public Use
  Company Number: DE-SHIRE-SPV1-2011-00457

PATIENT

DRUGS (3)
  1. PANTOPRAZOL                        /01263202/ [Concomitant]
     Indication: PROPHYLAXIS AGAINST GASTROINTESTINAL ULCER
     Dosage: 40 MG, UNKNOWN
     Route: 048
  2. ACETYLSALICYLSAEURE [Concomitant]
     Indication: PRODUCT USED FOR UNKNOWN INDICATION
     Dosage: 100 MG, UNKNOWN
     Route: 048
  3. XAGRID [Suspect]
     Indication: THROMBOCYTOSIS
     Dosage: 2 DF, UNKNOWN
     Route: 048
     Dates: start: 20091101

REACTIONS (3)
  - HAEMATEMESIS [None]
  - VOMITING [None]
  - DEATH [None]
